FAERS Safety Report 19667376 (Version 2)
Quarter: 2024Q3

REPORT INFORMATION
  Report Type: Report from Study
  Country: US (occurrence: US)
  Receive Date: 20210806
  Receipt Date: 20240920
  Transmission Date: 20241017
  Serious: Yes (Other)
  Sender: SANOFI AVENTIS
  Company Number: US-SA-2020SA022467

PATIENT
  Age: 33 Year
  Sex: Female

DRUGS (12)
  1. DUPILUMAB [Suspect]
     Active Substance: DUPILUMAB
     Indication: Dermatitis atopic
     Dosage: 600 MG, 1X
     Route: 058
     Dates: start: 20180216, end: 20180216
  2. DUPILUMAB [Suspect]
     Active Substance: DUPILUMAB
     Dosage: 300 MG, QOW
     Route: 058
     Dates: start: 2018, end: 2020
  3. DUPILUMAB [Suspect]
     Active Substance: DUPILUMAB
     Dosage: HALF A DOSE
     Route: 058
     Dates: start: 20200917
  4. DUPILUMAB [Suspect]
     Active Substance: DUPILUMAB
     Dosage: 300 MG, QOW
     Route: 058
     Dates: start: 20200922, end: 20210615
  5. DUPILUMAB [Suspect]
     Active Substance: DUPILUMAB
     Dosage: 300 MG, QOW
     Route: 058
  6. EUCRISA [Suspect]
     Active Substance: CRISABOROLE
     Indication: Erythema
  7. EUCRISA [Suspect]
     Active Substance: CRISABOROLE
     Indication: Periorbital oedema
  8. EUCRISA [Suspect]
     Active Substance: CRISABOROLE
     Indication: Dry skin
  9. EUCRISA [Suspect]
     Active Substance: CRISABOROLE
     Indication: Skin exfoliation
  10. EUCRISA [Suspect]
     Active Substance: CRISABOROLE
     Indication: Skin fissures
  11. EUCRISA [Suspect]
     Active Substance: CRISABOROLE
     Indication: Skin irritation
  12. ZYRTEC [Concomitant]
     Active Substance: CETIRIZINE HYDROCHLORIDE
     Dosage: UNK
     Route: 065

REACTIONS (25)
  - Abortion spontaneous [Unknown]
  - Skin irritation [Recovering/Resolving]
  - Periorbital swelling [Recovering/Resolving]
  - Erythema [Recovering/Resolving]
  - Ear pruritus [Recovering/Resolving]
  - Dry skin [Not Recovered/Not Resolved]
  - Skin exfoliation [Recovering/Resolving]
  - Skin fissures [Recovering/Resolving]
  - Lacrimation increased [Recovering/Resolving]
  - Sneezing [Recovering/Resolving]
  - Condition aggravated [Recovering/Resolving]
  - Ocular hyperaemia [Recovered/Resolved]
  - Eye irritation [Not Recovered/Not Resolved]
  - Eye pruritus [Recovering/Resolving]
  - Dry eye [Not Recovered/Not Resolved]
  - Burning sensation [Recovering/Resolving]
  - Skin discolouration [Not Recovered/Not Resolved]
  - Nasopharyngitis [Not Recovered/Not Resolved]
  - Nasal congestion [Not Recovered/Not Resolved]
  - Eye pain [Recovered/Resolved]
  - Eyelid margin crusting [Recovered/Resolved]
  - Dermatitis atopic [Not Recovered/Not Resolved]
  - Rash [Not Recovered/Not Resolved]
  - Eczema [Not Recovered/Not Resolved]
  - Exposure during pregnancy [Unknown]

NARRATIVE: CASE EVENT DATE: 20200101
